FAERS Safety Report 13643568 (Version 2)
Quarter: 2017Q3

REPORT INFORMATION
  Report Type: Report from Study
  Country: JP (occurrence: JP)
  Receive Date: 20170612
  Receipt Date: 20170823
  Transmission Date: 20171127
  Serious: Yes (Life-Threatening, Hospitalization)
  Sender: FDA-Public Use
  Company Number: JP-CELGENEUS-JPN-2017036907

PATIENT
  Age: 76 Year
  Sex: Male

DRUGS (4)
  1. LENADEX [Suspect]
     Active Substance: DEXAMETHASONE ACETATE
     Indication: PLASMA CELL MYELOMA
     Dosage: 12 MILLIGRAM
     Route: 048
     Dates: start: 20170302, end: 20170312
  2. LANSOPRAZOLE. [Concomitant]
     Active Substance: LANSOPRAZOLE
     Indication: PROPHYLAXIS
     Route: 048
  3. REVLIMID [Suspect]
     Active Substance: LENALIDOMIDE
     Indication: PLASMA CELL MYELOMA
     Dosage: 15 MILLIGRAM
     Route: 048
     Dates: start: 20170302, end: 20170312
  4. BAYASPIRIN [Concomitant]
     Active Substance: ASPIRIN
     Indication: PROPHYLAXIS
     Route: 048

REACTIONS (2)
  - Interstitial lung disease [Recovered/Resolved]
  - Rheumatoid arthritis [Unknown]

NARRATIVE: CASE EVENT DATE: 2017
